FAERS Safety Report 5781822-1 (Version None)
Quarter: 2008Q2

REPORT INFORMATION
  Report Type: 
  Country: None (occurrence: None)
  Receive Date: 20080623
  Receipt Date: 20080424
  Transmission Date: 20081010
  Serious: No
  Sender: FDA-Public Use
  Company Number: US-ASTRAZENECA-2008UW08349

PATIENT
  Age: 56 Year
  Sex: Female
  Weight: 121.6 kg

DRUGS (1)
  1. RHINOCORT [Suspect]
     Indication: HYPERSENSITIVITY
     Dosage: 2 SPRAYS, TWO TIMES A DAY
     Route: 045
     Dates: start: 20080417

REACTIONS (1)
  - DYSGEUSIA [None]
